FAERS Safety Report 9872122 (Version 1)
Quarter: 2014Q1

REPORT INFORMATION
  Report Type: Spontaneous
  Country: US (occurrence: US)
  Receive Date: 20140205
  Receipt Date: 20140205
  Transmission Date: 20141002
  Serious: No
  Sender: FDA-Public Use
  Company Number: US-ALLERGAN-1306781US

PATIENT
  Age: 7 Decade
  Sex: Male

DRUGS (3)
  1. BOTOX [Suspect]
     Indication: FACIAL SPASM
     Dosage: UNK UNK, SINGLE
     Route: 030
     Dates: start: 2010, end: 2010
  2. BOTOX [Suspect]
     Dosage: UNK, SINGLE
     Route: 030
  3. AMLODIPINE [Concomitant]
     Indication: HYPERTENSION
     Dosage: UNK
     Route: 048

REACTIONS (4)
  - VIIth nerve paralysis [Recovered/Resolved]
  - Compulsive lip biting [Unknown]
  - Facial paresis [Unknown]
  - Therapeutic response decreased [Unknown]
